FAERS Safety Report 10925543 (Version 2)
Quarter: 2015Q4

REPORT INFORMATION
  Report Type: Report from Study
  Country: TR (occurrence: TR)
  Receive Date: 20150318
  Receipt Date: 20151020
  Transmission Date: 20160304
  Serious: Yes (Other)
  Sender: FDA-Public Use
  Company Number: TR-CELGENE-TUR-2015011547

PATIENT

DRUGS (1)
  1. REVLIMID [Suspect]
     Active Substance: LENALIDOMIDE
     Indication: PLASMA CELL MYELOMA
     Route: 048

REACTIONS (21)
  - Thrombocytopenia [Unknown]
  - Neutropenia [Recovered/Resolved]
  - Thrombocytopenia [Unknown]
  - Thrombocytopenia [Recovered/Resolved]
  - Neutropenia [Unknown]
  - Leukopenia [Unknown]
  - Anaemia [Recovered/Resolved]
  - Hyperglycaemia [Unknown]
  - Pneumonia [Unknown]
  - Neutropenia [Unknown]
  - Productive cough [Unknown]
  - Neutropenia [Recovered/Resolved]
  - Leukopenia [Unknown]
  - Hypocalcaemia [Unknown]
  - Neutropenia [Unknown]
  - Neutropenia [Unknown]
  - Leukopenia [Unknown]
  - Anaemia [Unknown]
  - Thrombocytopenia [Unknown]
  - Anaemia [Not Recovered/Not Resolved]
  - Hyperglycaemia [Recovered/Resolved]

NARRATIVE: CASE EVENT DATE: 20140623
